FAERS Safety Report 9642722 (Version 3)
Quarter: 2014Q1

REPORT INFORMATION
  Report Type: Spontaneous
  Country: DE (occurrence: DE)
  Receive Date: 20131024
  Receipt Date: 20140210
  Transmission Date: 20141002
  Serious: Yes (Other)
  Sender: FDA-Public Use
  Company Number: DE-AMGEN-DEUSP2013025277

PATIENT
  Age: 55 Year
  Sex: Female

DRUGS (1)
  1. ENBREL [Suspect]
     Indication: RHEUMATOID ARTHRITIS
     Dosage: 50 MG, WEEKLY
     Route: 065
     Dates: start: 20121212, end: 2013

REACTIONS (4)
  - Rheumatoid arthritis [Unknown]
  - Impaired healing [Not Recovered/Not Resolved]
  - Periodontal inflammation [Not Recovered/Not Resolved]
  - Sinus perforation [Not Recovered/Not Resolved]
